FAERS Safety Report 8615946-8 (Version None)
Quarter: 2012Q3

REPORT INFORMATION
  Report Type: 
  Country: None (occurrence: None)
  Receive Date: 20120823
  Receipt Date: 20120813
  Transmission Date: 20120928
  Serious: Yes (Hospitalization)
  Sender: FDA-Public Use
  Company Number: FR-GLAXOSMITHKLINE-B0824729A

PATIENT
  Sex: Male

DRUGS (7)
  1. DAIVOBET [Concomitant]
     Indication: RASH MACULAR
     Dates: start: 20120101
  2. LOCAPRED [Concomitant]
     Indication: SKIN PLAQUE
     Dates: start: 20120503
  3. ART 50 [Concomitant]
     Indication: ARTHRALGIA
     Dates: start: 20100101
  4. LOCOID [Concomitant]
     Indication: SKIN PLAQUE
     Dates: start: 20120201
  5. DIPROSALIC [Concomitant]
     Indication: SKIN PLAQUE
     Dates: start: 20120413
  6. DIPROSONE [Concomitant]
     Indication: SKIN PLAQUE
     Dates: start: 20120503
  7. SORIATANE [Suspect]
     Indication: SKIN PLAQUE
     Dosage: 10NG PER DAY
     Route: 048
     Dates: start: 20120503, end: 20120515

REACTIONS (2)
  - EOSINOPHILIA [None]
  - TOXIC SKIN ERUPTION [None]
